FAERS Safety Report 6953729-5 (Version None)
Quarter: 2010Q3

REPORT INFORMATION
  Report Type: 
  Country: None (occurrence: None)
  Receive Date: 20100829
  Receipt Date: 20100617
  Transmission Date: 20110219
  Serious: No
  Sender: FDA-Public Use
  Company Number: US-ABBOTT-10P-163-0653158-00

PATIENT
  Sex: Female

DRUGS (3)
  1. NIASPAN [Suspect]
     Indication: PRODUCT USED FOR UNKNOWN INDICATION
  2. ASPIRIN [Concomitant]
     Indication: FLUSHING
  3. ASPIRIN [Concomitant]
     Indication: PROPHYLAXIS

REACTIONS (4)
  - ERYTHEMA [None]
  - FEELING ABNORMAL [None]
  - FEELING HOT [None]
  - INSOMNIA [None]
